FAERS Safety Report 9914605 (Version 2)
Quarter: 2014Q1

REPORT INFORMATION
  Report Type: Report from Study
  Country: DE (occurrence: DE)
  Receive Date: 20140220
  Receipt Date: 20140220
  Transmission Date: 20141002
  Serious: Yes (Hospitalization)
  Sender: FDA-Public Use
  Company Number: DE-BRISTOL-MYERS SQUIBB COMPANY-19946425

PATIENT
  Age: 63 Year
  Sex: Male

DRUGS (7)
  1. PACLITAXEL [Suspect]
     Indication: NON-SMALL CELL LUNG CANCER
     Dosage: CONTINUING
     Route: 042
     Dates: start: 20131204
  2. CARBOPLATIN [Suspect]
     Indication: NON-SMALL CELL LUNG CANCER
     Dosage: CONTINUING
     Route: 042
     Dates: start: 20131204
  3. SPIRIVA [Concomitant]
     Dosage: ONGOING
     Dates: start: 201310
  4. FORMOTEROL [Concomitant]
     Dosage: ONGOING
     Dates: start: 201310
  5. SODIUM CHLORIDE [Concomitant]
  6. ATROVENT [Concomitant]
  7. OXYGEN [Concomitant]

REACTIONS (3)
  - Leukopenia [Recovered/Resolved]
  - Pulmonary embolism [Recovered/Resolved]
  - Dyspnoea [Recovered/Resolved]
